FAERS Safety Report 7892545-7 (Version None)
Quarter: 2011Q4

REPORT INFORMATION
  Report Type: 
  Country: None (occurrence: None)
  Receive Date: 20111104
  Receipt Date: 20111028
  Transmission Date: 20120403
  Serious: Yes (Hospitalization, Other)
  Sender: FDA-Public Use
  Company Number: BR-ABBOTT-11P-020-0869682-00

PATIENT
  Sex: Female
  Weight: 76 kg

DRUGS (10)
  1. HUMIRA [Suspect]
     Indication: RHEUMATOID ARTHRITIS
     Route: 058
     Dates: start: 20060406, end: 20110425
  2. LOSARTAN POTASSIUM [Concomitant]
     Indication: HYPERTENSION
     Route: 048
  3. PANTOPRAZOLE [Concomitant]
     Indication: GASTRIC DISORDER
     Route: 048
  4. ATENOLOL [Concomitant]
     Indication: HYPERTENSION
     Route: 048
  5. ARAVA [Concomitant]
     Indication: RHEUMATOID ARTHRITIS
     Route: 048
  6. HUMIRA [Suspect]
     Route: 058
     Dates: start: 20110514, end: 20110601
  7. PREDNISONE [Concomitant]
     Indication: RHEUMATOID ARTHRITIS
     Route: 048
  8. HUMIRA [Suspect]
     Route: 058
     Dates: start: 20110812, end: 20111015
  9. HUMIRA [Suspect]
     Route: 058
     Dates: start: 20110701
  10. HUMIRA [Suspect]
     Route: 058
     Dates: start: 20111015

REACTIONS (9)
  - DIARRHOEA [None]
  - ARTHRODESIS [None]
  - MUSCULAR WEAKNESS [None]
  - RENAL SURGERY [None]
  - HAEMORRHOIDS [None]
  - URETHRAL OBSTRUCTION [None]
  - ARTHRALGIA [None]
  - ABDOMINAL PAIN [None]
  - URINARY TRACT INFECTION [None]
